FAERS Safety Report 18770013 (Version 2)
Quarter: 2021Q1

REPORT INFORMATION
  Report Type: Spontaneous
  Country: DE (occurrence: DE)
  Receive Date: 20210122
  Receipt Date: 20210222
  Transmission Date: 20210419
  Serious: No
  Sender: FDA-Public Use
  Company Number: DE-HORMOSAN PHARMA GMBH-2021-00076

PATIENT
  Sex: Female

DRUGS (6)
  1. QUETIAPIN [Suspect]
     Active Substance: QUETIAPINE
     Indication: APATHY
     Dosage: 50 MILLIGRAM,
     Route: 065
  2. QUETIAPIN?HORMOSAN 100 MG FILMTABLETTEN [Suspect]
     Active Substance: QUETIAPINE FUMARATE
     Indication: SLEEP DISORDER
     Dosage: 100 MILLIGRAM, QD
     Route: 048
     Dates: start: 202011, end: 202012
  3. QUETIAPIN [Suspect]
     Active Substance: QUETIAPINE
     Indication: LISTLESS
  4. QUETIAPIN?HORMOSAN 100 MG FILMTABLETTEN [Suspect]
     Active Substance: QUETIAPINE FUMARATE
     Indication: LISTLESS
     Dosage: 100 MILLIGRAM, QD
     Route: 048
  5. QUETIAPIN?HORMOSAN 100 MG FILMTABLETTEN [Suspect]
     Active Substance: QUETIAPINE FUMARATE
     Indication: APATHY
     Dosage: 100 MILLIGRAM, QD
     Route: 048
     Dates: start: 202001, end: 202003
  6. QUETIAPIN [Suspect]
     Active Substance: QUETIAPINE
     Indication: SLEEP DISORDER

REACTIONS (7)
  - Hunger [Unknown]
  - Hypertension [Unknown]
  - Feeling abnormal [Unknown]
  - Psychiatric symptom [Unknown]
  - Breast enlargement [Unknown]
  - Metrorrhagia [Unknown]
  - Drug intolerance [Unknown]
